FAERS Safety Report 9909183 (Version 4)
Quarter: 2014Q2

REPORT INFORMATION
  Report Type: Report from Study
  Country: JP (occurrence: JP)
  Receive Date: 20140219
  Receipt Date: 20140401
  Transmission Date: 20141212
  Serious: Yes (Hospitalization)
  Sender: FDA-Public Use
  Company Number: 201401946

PATIENT
  Age: 53 Year
  Sex: Female

DRUGS (3)
  1. SM-13496 [Suspect]
     Indication: SCHIZOPHRENIA
     Route: 048
     Dates: start: 20140129, end: 20140202
  2. SM-13496 [Suspect]
     Indication: SCHIZOPHRENIA
     Route: 048
     Dates: start: 20140203, end: 20140209
  3. SM-13496 [Suspect]
     Indication: SCHIZOPHRENIA
     Route: 048
     Dates: start: 20140210, end: 20140210

REACTIONS (2)
  - Schizophrenia [Recovered/Resolved]
  - Overdose [Unknown]
